FAERS Safety Report 8143184-4 (Version None)
Quarter: 2012Q1

REPORT INFORMATION
  Report Type: 
  Country: None (occurrence: None)
  Receive Date: 20120217
  Receipt Date: 20120214
  Transmission Date: 20120608
  Serious: No
  Sender: FDA-Public Use
  Company Number: US-PFIZER INC-2012040788

PATIENT
  Sex: Female
  Weight: 67.12 kg

DRUGS (4)
  1. ACCUPRIL [Concomitant]
     Indication: BLOOD PRESSURE ABNORMAL
     Dosage: 20/12.5MG DAILY IN THE MORNING
  2. LISINOPRIL AND HYDROCHLOROTHIAZIDE [Concomitant]
     Indication: BLOOD PRESSURE ABNORMAL
     Dosage: 20/12.5 MG, DAILY IN THE MORNING
  3. GABAPENTIN [Suspect]
     Indication: LIPOMA EXCISION
     Dosage: UNK
     Dates: start: 20060101, end: 20060101
  4. TOPROL-XL [Concomitant]
     Indication: BLOOD PRESSURE ABNORMAL
     Dosage: 100 MG, DAILY AT NIGHT

REACTIONS (3)
  - EYE DISORDER [None]
  - MUSCLE SPASMS [None]
  - DIZZINESS [None]
